FAERS Safety Report 5405443-5 (Version None)
Quarter: 2007Q3

REPORT INFORMATION
  Report Type: 
  Country: None (occurrence: None)
  Receive Date: 20070803
  Receipt Date: 20070724
  Transmission Date: 20080115
  Serious: Yes (Death)
  Sender: FDA-Public Use
  Company Number: IT-PFIZER INC-2007061927

PATIENT
  Age: 50 Year
  Sex: Female

DRUGS (3)
  1. EPIRUBICIN HYDROCHLORIDE [Suspect]
     Indication: BREAST CANCER
     Dosage: DAILY DOSE:75MG/M*2
     Route: 042
  2. DOCETAXEL [Suspect]
     Indication: BREAST CANCER
     Dosage: DAILY DOSE:80MG/M*2
     Route: 042
  3. NEUPOGEN [Concomitant]
     Dates: start: 20070710, end: 20070712

REACTIONS (1)
  - DEATH [None]
